FAERS Safety Report 12946814 (Version 1)
Quarter: 2016Q4

REPORT INFORMATION
  Report Type: Spontaneous
  Country: UY (occurrence: UY)
  Receive Date: 20161116
  Receipt Date: 20161116
  Transmission Date: 20170207
  Serious: Yes (Other)
  Sender: FDA-Public Use
  Company Number: UY-GLAXOSMITHKLINE-UY2016GSK167716

PATIENT
  Age: 74 Year
  Sex: Female

DRUGS (2)
  1. FLIXOTIDE EVOHALER [Suspect]
     Active Substance: FLUTICASONE PROPIONATE
     Indication: PRODUCT USED FOR UNKNOWN INDICATION
     Dosage: 2 BREATH(S), UNK, 125 MCG
  2. SERETIDE [Suspect]
     Active Substance: FLUTICASONE PROPIONATE\SALMETEROL XINAFOATE
     Indication: BRONCHOSPASM
     Dosage: UNK

REACTIONS (4)
  - Cough [Unknown]
  - Odynophagia [Unknown]
  - Dry mouth [Unknown]
  - Arrhythmia [Unknown]
